FAERS Safety Report 4569254-5 (Version None)
Quarter: 2005Q1

REPORT INFORMATION
  Report Type: 
  Country: None (occurrence: None)
  Receive Date: 20050203
  Receipt Date: 20040901
  Transmission Date: 20050727
  Serious: Yes (Life-Threatening, Hospitalization)
  Sender: FDA-Public Use
  Company Number: JP-MERCK-0409USA00133

PATIENT
  Age: 60 Year
  Sex: Female

DRUGS (10)
  1. LOXONIN [Suspect]
     Indication: BACK PAIN
     Route: 048
     Dates: end: 20030620
  2. LIPOVAS [Concomitant]
     Indication: HYPERLIPIDAEMIA
     Route: 048
  3. GASTER [Concomitant]
     Indication: GASTRIC ULCER
     Route: 048
     Dates: end: 20030620
  4. ISONIAZID [Concomitant]
     Indication: TUBERCULOSIS PROPHYLAXIS
     Route: 065
     Dates: end: 20040621
  5. ELCITONIN [Concomitant]
     Indication: BACK PAIN
     Route: 030
     Dates: start: 20020723, end: 20030620
  6. EUGLUCON [Concomitant]
     Indication: DIABETES MELLITUS
     Route: 048
     Dates: end: 20021117
  7. ITRIZOLE [Concomitant]
     Indication: NAIL TINEA
     Route: 048
     Dates: end: 20021003
  8. FOSAMAX [Suspect]
     Indication: OSTEOPOROSIS
     Route: 048
     Dates: start: 20020726, end: 20030620
  9. PREDNISOLONE [Suspect]
     Indication: INTERSTITIAL LUNG DISEASE
     Route: 048
  10. BAKTAR [Concomitant]
     Indication: SECONDARY IMMUNODEFICIENCY
     Route: 048

REACTIONS (3)
  - ANAEMIA [None]
  - HAEMORRHAGE [None]
  - OSTEOPOROSIS [None]
